FAERS Safety Report 15699384 (Version 4)
Quarter: 2019Q2

REPORT INFORMATION
  Report Type: Spontaneous
  Country: CH (occurrence: CH)
  Receive Date: 20181207
  Receipt Date: 20190611
  Transmission Date: 20190711
  Serious: Yes (Other)
  Sender: FDA-Public Use
  Company Number: CH-MYLANLABS-2018M1091136

PATIENT
  Age: 34 Year
  Sex: Female

DRUGS (6)
  1. BULBOID [Concomitant]
     Indication: CONSTIPATION
     Dosage: UNK, QD
  2. BIOTIN [Concomitant]
     Active Substance: BIOTIN
  3. BURGERSTEIN ZINKGLUKONAT [Concomitant]
  4. ISOPTIN [Suspect]
     Active Substance: VERAPAMIL HYDROCHLORIDE
     Indication: HEART RATE ABNORMAL
     Dosage: 80 MILLIGRAM, QD (1X/DAY)
  5. ISOPTIN [Suspect]
     Active Substance: VERAPAMIL HYDROCHLORIDE
     Dosage: 40 MILLIGRAM, QD (80 IN HALF)
  6. DAFALGAN [Concomitant]
     Active Substance: ACETAMINOPHEN
     Dosage: UNK, PRN

REACTIONS (30)
  - Blindness [Unknown]
  - Chronic gastritis [Unknown]
  - Osteoporosis [Not Recovered/Not Resolved]
  - Muscle spasms [Not Recovered/Not Resolved]
  - Galactorrhoea [Unknown]
  - Dizziness [Not Recovered/Not Resolved]
  - Autoimmune thyroiditis [Not Recovered/Not Resolved]
  - Vitamin D deficiency [Not Recovered/Not Resolved]
  - Biotin deficiency [Not Recovered/Not Resolved]
  - Tinnitus [Unknown]
  - Visual impairment [Not Recovered/Not Resolved]
  - Vitamin B12 deficiency [Not Recovered/Not Resolved]
  - Gingival disorder [Unknown]
  - Headache [Not Recovered/Not Resolved]
  - Hypoacusis [Unknown]
  - Faecal calprotectin increased [Unknown]
  - Zinc deficiency [Not Recovered/Not Resolved]
  - Tooth fracture [Unknown]
  - Blood prolactin increased [Unknown]
  - Retinal haemorrhage [Unknown]
  - Dysphonia [Unknown]
  - Vitreous detachment [Unknown]
  - Deafness [Unknown]
  - Asthenia [Not Recovered/Not Resolved]
  - Cardiovascular disorder [Unknown]
  - Constipation [Unknown]
  - Iron deficiency [Not Recovered/Not Resolved]
  - Blood pressure decreased [Recovering/Resolving]
  - Myalgia [Not Recovered/Not Resolved]
  - Arthralgia [Not Recovered/Not Resolved]

NARRATIVE: CASE EVENT DATE: 2016
